FAERS Safety Report 10185972 (Version 2)
Quarter: 2014Q2

REPORT INFORMATION
  Report Type: Spontaneous
  Country: US (occurrence: US)
  Receive Date: 20140521
  Receipt Date: 20140609
  Transmission Date: 20141212
  Serious: Yes (Other)
  Sender: FDA-Public Use
  Company Number: US-PFIZER INC-2014133714

PATIENT
  Age: 57 Year
  Sex: 0

DRUGS (13)
  1. LYRICA [Suspect]
     Dosage: 50MG, 2 THREE TIMES A DAY
     Route: 048
  2. NEURONTIN [Suspect]
     Dosage: 300 MG, (TAKE ONE BY MOUTH AT BEDTIME)
     Route: 048
  3. LISINOPRIL [Concomitant]
     Indication: BLOOD PRESSURE ABNORMAL
     Dosage: 20 MG, DAILY
  4. GLUCOPHAGE [Concomitant]
     Dosage: 1000 MG, 2X/DAY
  5. REGLAN [Concomitant]
     Dosage: 10 MG, 4X/DAY (AC AND HS)
  6. PRAVASTATIN SODIUM [Concomitant]
     Indication: BLOOD CHOLESTEROL
     Dosage: 40 MG, (AT BEDTIME)
  7. OMEPRAZOLE [Concomitant]
     Dosage: 40 MG, DAILY
  8. BACTRIM DS [Concomitant]
     Dosage: 800-160 MG, 2X/DAY
     Route: 048
  9. ACETAMINOPHEN [Concomitant]
     Dosage: 650 MG, AS NEEDED
     Route: 048
  10. ASPIRIN [Concomitant]
     Dosage: 81 MG, DAILY
  11. EFFIENT [Concomitant]
     Dosage: 5 MG, DAILY
  12. NOVOLOG [Concomitant]
     Dosage: 100 UNIT/ML VIAL, SLIDING SCALE
  13. LANTUS [Concomitant]
     Dosage: 100 UNITS/ML VIAL, 40 UNITS 2X/DAY

REACTIONS (3)
  - Diabetes mellitus [Unknown]
  - Hypertension [Unknown]
  - Cardiac disorder [Unknown]
